FAERS Safety Report 7236612-X (Version None)
Quarter: 2011Q1

REPORT INFORMATION
  Report Type: 
  Country: None (occurrence: None)
  Receive Date: 20110120
  Receipt Date: 20110112
  Transmission Date: 20110831
  Serious: Yes (Hospitalization)
  Sender: FDA-Public Use
  Company Number: US-PERRIGO-11US000258

PATIENT
  Age: 41 Year
  Sex: Male

DRUGS (3)
  1. CANNABIS [Suspect]
     Indication: SUBSTANCE ABUSE
     Route: 065
  2. ACETAMINOPHEN 650MG ER 544 [Suspect]
     Indication: INTENTIONAL OVERDOSE
     Dosage: UNK
     Route: 048
     Dates: start: 20070101, end: 20070101
  3. COCAINE [Suspect]
     Indication: SUBSTANCE ABUSE
     Route: 065

REACTIONS (4)
  - ALANINE AMINOTRANSFERASE INCREASED [None]
  - INTENTIONAL OVERDOSE [None]
  - CATATONIA [None]
  - ASPARTATE AMINOTRANSFERASE INCREASED [None]
